FAERS Safety Report 25723522 (Version 1)
Quarter: 2025Q3

REPORT INFORMATION
  Report Type: Spontaneous
  Country: JP (occurrence: JP)
  Receive Date: 20250825
  Receipt Date: 20250825
  Transmission Date: 20251021
  Serious: Yes (Other)
  Sender: NOVO NORDISK
  Company Number: JP-NOVOPROD-1505189

PATIENT
  Sex: Male

DRUGS (2)
  1. WEGOVY [Suspect]
     Active Substance: SEMAGLUTIDE
     Dosage: 1.7 MG, QW
     Route: 058
     Dates: start: 2025
  2. WEGOVY [Suspect]
     Active Substance: SEMAGLUTIDE
     Indication: Product used for unknown indication
     Dosage: 1 MG, QW
     Route: 058

REACTIONS (10)
  - Erectile dysfunction [Unknown]
  - Ejaculation delayed [Unknown]
  - Hyperchlorhydria [Unknown]
  - Salivary hyposecretion [Unknown]
  - Dysarthria [Unknown]
  - Lip dry [Unknown]
  - Nocturia [Unknown]
  - Dry mouth [Unknown]
  - Dysgeusia [Unknown]
  - Nausea [Unknown]
